FAERS Safety Report 5886225-7 (Version None)
Quarter: 2008Q3

REPORT INFORMATION
  Report Type: 
  Country: None (occurrence: None)
  Receive Date: 20080917
  Receipt Date: 20080904
  Transmission Date: 20090109
  Serious: Yes (Hospitalization)
  Sender: FDA-Public Use
  Company Number: GB-ELI_LILLY_AND_COMPANY-GB200806004205

PATIENT
  Sex: Female

DRUGS (15)
  1. FORTEO [Suspect]
     Indication: OSTEOPOROSIS
     Dosage: 20 UG, DAILY (1/D)
     Route: 058
     Dates: start: 20080611, end: 20080618
  2. ORAMORPH SR [Concomitant]
     Dosage: UNK, AS NEEDED
     Route: 065
  3. INFUMORPH [Concomitant]
     Dosage: 10 MG, 2/D
     Route: 065
  4. CANDESARTAN [Concomitant]
     Dosage: 8 MG, UNKNOWN
     Route: 065
  5. OMEPRAZOLE [Concomitant]
     Dosage: 20 MG, DAILY (1/D)
     Route: 065
  6. CARBOCISTEINE [Concomitant]
     Dosage: 375 MG, 3/D
     Route: 065
  7. AMITRIPTYLINE HCL [Concomitant]
     Dosage: 20 MG, UNKNOWN
     Route: 065
  8. FLUOXETINE [Concomitant]
     Dosage: 20 MG, DAILY (1/D)
     Route: 065
  9. SPIRIVA [Concomitant]
     Dosage: 2.5 UG, 2/D
     Route: 065
  10. SERETIDE [Concomitant]
     Dosage: UNK, UNKNOWN
     Route: 065
  11. VENTOLIN                                /SCH/ [Concomitant]
     Dosage: UNK, UNKNOWN
     Route: 065
  12. BUMETANIDE [Concomitant]
     Dosage: 1 MG, DAILY (1/D)
     Route: 065
  13. OXYGEN [Concomitant]
     Dosage: UNK, UNKNOWN
     Route: 065
  14. ACETAMINOPHEN [Concomitant]
     Dosage: UNK, UNKNOWN
     Route: 065
  15. ALBUTEROL SPIROS [Concomitant]
     Dosage: UNK, UNKNOWN
     Route: 065

REACTIONS (4)
  - DYSPNOEA [None]
  - EYE PAIN [None]
  - EYE SWELLING [None]
  - MALAISE [None]
